FAERS Safety Report 22032681 (Version 1)
Quarter: 2023Q1

REPORT INFORMATION
  Report Type: Spontaneous
  Country: FR (occurrence: FR)
  Receive Date: 20230224
  Receipt Date: 20230224
  Transmission Date: 20230417
  Serious: Yes (Other)
  Sender: FDA-Public Use
  Company Number: None

PATIENT
  Age: 19 Year
  Sex: Female

DRUGS (1)
  1. ESTRADIOL [Suspect]
     Active Substance: ESTRADIOL
     Indication: Product used for unknown indication
     Route: 064
     Dates: start: 1971, end: 1971

REACTIONS (2)
  - Anorexia and bulimia syndrome [Unknown]
  - Suicide attempt [Unknown]

NARRATIVE: CASE EVENT DATE: 19900101
